FAERS Safety Report 5797147-4 (Version None)
Quarter: 2008Q3

REPORT INFORMATION
  Report Type: 
  Country: None (occurrence: None)
  Receive Date: 20080701
  Receipt Date: 20080620
  Transmission Date: 20090109
  Serious: Yes (Hospitalization)
  Sender: FDA-Public Use
  Company Number: PHHY2008CH11468

PATIENT
  Age: 41 Year
  Sex: Female

DRUGS (3)
  1. ZOMETA [Suspect]
     Indication: OSTEOPOROSIS
     Dosage: 4 MG/5 ML
     Route: 042
     Dates: start: 20080603
  2. VENOFER [Suspect]
     Dosage: 300 MG, UNK
     Dates: start: 20080603
  3. VITARUBIN [Suspect]
     Dosage: 1000 UG, UNK
     Route: 030
     Dates: start: 20080603

REACTIONS (9)
  - ABDOMINAL PAIN [None]
  - BACK PAIN [None]
  - C-REACTIVE PROTEIN INCREASED [None]
  - CONSTIPATION [None]
  - HYPOCALCAEMIA [None]
  - HYPOPHOSPHATAEMIA [None]
  - PAIN IN EXTREMITY [None]
  - PYREXIA [None]
  - THROMBOCYTOPENIA [None]
